FAERS Safety Report 9102979 (Version 2)
Quarter: 2013Q4

REPORT INFORMATION
  Report Type: Report from Study
  Country: ZA (occurrence: ZA)
  Receive Date: 20130218
  Receipt Date: 20131019
  Transmission Date: 20140711
  Serious: Yes (Other)
  Sender: FDA-Public Use
  Company Number: ZA-ROCHE-1191546

PATIENT
  Age: 60 Year
  Sex: Female

DRUGS (16)
  1. LUCENTIS [Suspect]
     Indication: MACULAR DEGENERATION
     Route: 050
     Dates: start: 20100126
  2. LUCENTIS [Suspect]
     Route: 050
     Dates: start: 20100305
  3. LUCENTIS [Suspect]
     Route: 050
     Dates: start: 20100429
  4. LUCENTIS [Suspect]
     Route: 050
     Dates: start: 20100520
  5. LUCENTIS [Suspect]
     Route: 050
     Dates: start: 20110217
  6. LUCENTIS [Suspect]
     Route: 050
     Dates: start: 20110317
  7. LUCENTIS [Suspect]
     Route: 050
     Dates: start: 20110728
  8. LUCENTIS [Suspect]
     Route: 050
     Dates: start: 20110922
  9. LUCENTIS [Suspect]
     Route: 050
     Dates: start: 20111020
  10. LUCENTIS [Suspect]
     Route: 050
     Dates: start: 20120112
  11. LUCENTIS [Suspect]
     Route: 050
     Dates: start: 20120118
  12. AVASTIN [Suspect]
     Indication: MACULAR DEGENERATION
     Route: 065
     Dates: start: 20080506
  13. AVASTIN [Suspect]
     Route: 065
     Dates: start: 20080617
  14. AVASTIN [Suspect]
     Route: 065
     Dates: start: 20080715
  15. AVASTIN [Suspect]
     Route: 065
     Dates: start: 20081014
  16. AVASTIN [Suspect]
     Route: 065
     Dates: start: 20081118

REACTIONS (4)
  - Subretinal fluid [Unknown]
  - Cataract [Unknown]
  - Visual acuity reduced [Recovering/Resolving]
  - Inappropriate schedule of drug administration [Unknown]
